FAERS Safety Report 6342942-6 (Version None)
Quarter: 2009Q3

REPORT INFORMATION
  Report Type: 
  Country: None (occurrence: None)
  Receive Date: 20090908
  Receipt Date: 20090831
  Transmission Date: 20100115
  Serious: Yes (Life-Threatening, Hospitalization)
  Sender: FDA-Public Use
  Company Number: BW-BRISTOL-MYERS SQUIBB COMPANY-14767131

PATIENT
  Age: 29 Year
  Sex: Female
  Weight: 49 kg

DRUGS (8)
  1. EFAVIRENZ [Suspect]
     Indication: HIV INFECTION
     Route: 048
     Dates: start: 20090806, end: 20090828
  2. TRUVADA [Suspect]
     Indication: HIV INFECTION
     Dosage: 1DF=200/300MG
     Route: 048
     Dates: start: 20090806, end: 20090828
  3. ISONIAZID [Suspect]
     Indication: PULMONARY TUBERCULOSIS
     Dates: start: 20090707
  4. ETHAMBUTOL [Suspect]
     Indication: PULMONARY TUBERCULOSIS
     Dates: start: 20090707
  5. RIFAMPICIN [Suspect]
     Indication: PULMONARY TUBERCULOSIS
     Dates: start: 20090707
  6. PYRAZINAMIDE [Suspect]
     Indication: PULMONARY TUBERCULOSIS
     Dates: start: 20090707
  7. COTRIM [Suspect]
     Indication: ADJUVANT THERAPY
     Dates: start: 20090727, end: 20090801
  8. PYRIDOXINE [Concomitant]
     Indication: ADJUVANT THERAPY
     Dates: start: 20090727, end: 20090801

REACTIONS (1)
  - HEPATOTOXICITY [None]
